FAERS Safety Report 7738536-8 (Version None)
Quarter: 2011Q3

REPORT INFORMATION
  Report Type: 
  Country: None (occurrence: None)
  Receive Date: 20110906
  Receipt Date: 20110906
  Transmission Date: 20111222
  Serious: Yes (Other)
  Sender: FDA-Public Use
  Company Number: FK201101660

PATIENT
  Age: 24 Year
  Sex: Male

DRUGS (5)
  1. BLEMOYCIN (BLEOMYCIN) (BLEOMYCIN) [Concomitant]
  2. IFOSFAMIDE [Suspect]
     Indication: GERM CELL CANCER
     Dosage: 2.0 G/M2
  3. CARBOPLATIN [Concomitant]
     Indication: GERM CELL CANCER
     Dosage: 300 MG/M2
  4. CISPLATIN [Concomitant]
  5. ETOPOSIDE [Suspect]
     Indication: GERM CELL CANCER
     Dosage: 400 MG/M2

REACTIONS (6)
  - LEUKOPENIA [None]
  - RENAL TUBULAR DISORDER [None]
  - NAUSEA [None]
  - DECREASED APPETITE [None]
  - PYREXIA [None]
  - THROMBOCYTOPENIA [None]
